FAERS Safety Report 18112895 (Version 1)
Quarter: 2020Q3

REPORT INFORMATION
  Report Type: Spontaneous
  Country: US (occurrence: US)
  Receive Date: 20200804
  Receipt Date: 20200804
  Transmission Date: 20201103
  Serious: No
  Sender: FDA-Public Use
  Company Number: None

PATIENT
  Age: 51 Year
  Sex: Female
  Weight: 76.5 kg

DRUGS (5)
  1. SYNTHROID [Concomitant]
     Active Substance: LEVOTHYROXINE SODIUM
  2. TYLENOL [Concomitant]
     Active Substance: ACETAMINOPHEN
  3. TRILEPTAL [Concomitant]
     Active Substance: OXCARBAZEPINE
  4. LEVOFLOXACIN 750 MG TAB [Suspect]
     Active Substance: LEVOFLOXACIN
     Indication: BACTERIAL INFECTION
     Dosage: ?          QUANTITY:1 TABLET(S);?
     Route: 048
     Dates: start: 20200730, end: 20200801
  5. LITYHIUM 300MG [Concomitant]

REACTIONS (9)
  - Nausea [None]
  - Dyspnoea [None]
  - Decreased appetite [None]
  - Headache [None]
  - Asthenia [None]
  - Gait inability [None]
  - Restlessness [None]
  - Insomnia [None]
  - Atypical pneumonia [None]

NARRATIVE: CASE EVENT DATE: 20200801
